FAERS Safety Report 5922409-7 (Version None)
Quarter: 2008Q3

REPORT INFORMATION
  Report Type: 
  Country: None (occurrence: None)
  Receive Date: 20080930
  Receipt Date: 20080925
  Transmission Date: 20090109
  Serious: Yes (Other)
  Sender: FDA-Public Use
  Company Number: 200814094

PATIENT
  Age: 60 Year
  Sex: Female

DRUGS (10)
  1. VIVAGLOBIN [Suspect]
     Indication: IMMUNOSUPPRESSION
     Dosage: 4.8 G Q1W SC; 7.3 G Q1W SC; SC; SC
     Route: 058
     Dates: start: 20061009, end: 20080401
  2. VIVAGLOBIN [Suspect]
     Indication: IMMUNOSUPPRESSION
     Dosage: 4.8 G Q1W SC; 7.3 G Q1W SC; SC; SC
     Route: 058
     Dates: start: 20080918, end: 20080918
  3. VIVAGLOBIN [Suspect]
     Indication: IMMUNOSUPPRESSION
     Dosage: 4.8 G Q1W SC; 7.3 G Q1W SC; SC; SC
     Route: 058
     Dates: start: 20080401
  4. VIVAGLOBIN [Suspect]
     Dosage: SC
     Route: 058
  5. PENICILLIN [Concomitant]
  6. ASPIRIN [Concomitant]
  7. PREDNISONE TAB [Concomitant]
  8. CELEBREX [Concomitant]
  9. SPORANOX [Concomitant]
  10. DIABETIC MEDICATION [Concomitant]

REACTIONS (5)
  - HAEMORRHAGE [None]
  - INFECTION [None]
  - INFUSION RELATED REACTION [None]
  - INFUSION SITE SWELLING [None]
  - PROCEDURAL COMPLICATION [None]
